FAERS Safety Report 5731885-4 (Version None)
Quarter: 2008Q2

REPORT INFORMATION
  Report Type: 
  Country: None (occurrence: None)
  Receive Date: 20080508
  Receipt Date: 20080430
  Transmission Date: 20081010
  Serious: Yes (Hospitalization, Other)
  Sender: FDA-Public Use
  Company Number: GB-AVENTIS-200721786GDDC

PATIENT
  Age: 57 Year
  Sex: Male

DRUGS (10)
  1. DOCETAXEL [Suspect]
     Dosage: DOSE: UNK
     Dates: start: 20071218, end: 20071218
  2. CISPLATIN [Suspect]
     Dosage: DOSE: UNK
     Dates: start: 20071218
  3. XELODA [Suspect]
     Dosage: DOSE: UNK
     Dates: start: 20071218
  4. ENOXAPARIN SODIUM [Concomitant]
     Route: 058
  5. CIPROFLOXACIN [Concomitant]
     Route: 048
  6. ASPIRIN [Concomitant]
     Route: 048
  7. OMEPRAZOLE [Concomitant]
     Route: 048
  8. DOMPERIDONE [Concomitant]
     Route: 048
  9. CALCICHEW                          /00108001/ [Concomitant]
     Dosage: DOSE: 2 TABLETS
     Route: 048
  10. GTN-S [Concomitant]
     Dosage: DOSE: 2 PUFFS

REACTIONS (7)
  - CLOSTRIDIAL INFECTION [None]
  - DIARRHOEA [None]
  - HYPOCALCAEMIA [None]
  - HYPOMAGNESAEMIA [None]
  - NEUTROPENIA [None]
  - RENAL FAILURE [None]
  - VOMITING [None]
